FAERS Safety Report 6904494-9 (Version None)
Quarter: 2010Q3

REPORT INFORMATION
  Report Type: 
  Country: None (occurrence: None)
  Receive Date: 20100804
  Receipt Date: 20090603
  Transmission Date: 20110219
  Serious: No
  Sender: FDA-Public Use
  Company Number: US-PFIZER INC-2009184336

PATIENT
  Sex: Male
  Weight: 90.7 kg

DRUGS (2)
  1. LYRICA [Suspect]
     Indication: DIABETIC NEUROPATHY
     Dosage: 50 MG, 3X/DAY
     Dates: start: 20090304
  2. PROSCAR [Concomitant]
     Indication: PROSTATOMEGALY
     Dosage: 5 MG, 1X/DAY

REACTIONS (4)
  - BALANCE DISORDER [None]
  - JOINT SWELLING [None]
  - MYALGIA [None]
  - OEDEMA PERIPHERAL [None]
